FAERS Safety Report 14711209 (Version 3)
Quarter: 2018Q2

REPORT INFORMATION
  Report Type: Spontaneous
  Country: IT (occurrence: IT)
  Receive Date: 20180403
  Receipt Date: 20180522
  Transmission Date: 20180711
  Serious: Yes (Other)
  Sender: FDA-Public Use
  Company Number: IT-BAUSCH-BL-2018-008021

PATIENT
  Age: 19 Year
  Sex: Female

DRUGS (29)
  1. LENOGRASTIM [Suspect]
     Active Substance: LENOGRASTIM
     Dosage: (CYCLIC) ANC: 0.5 TO 1.0 (CYCLE 2) ; CYCLICAL
     Route: 058
  2. LENOGRASTIM [Suspect]
     Active Substance: LENOGRASTIM
     Dosage: 5 MUG/KG, QD (CYCLIC CYCLE 3)
     Route: 058
  3. CYCLOPHOSPHAMIDE. [Suspect]
     Active Substance: CYCLOPHOSPHAMIDE
     Indication: ACUTE LYMPHOCYTIC LEUKAEMIA
     Dosage: CYCLIC (CYCLE 2)
     Route: 042
  4. DEXAMETHASONE SODIUM PHOSPHATE. [Suspect]
     Active Substance: DEXAMETHASONE SODIUM PHOSPHATE
     Indication: ACUTE LYMPHOCYTIC LEUKAEMIA
     Dosage: 5 MG/M2, BID (CYCLIC DAY 1-5 (CYCLE 2))
     Route: 048
  5. LENOGRASTIM [Suspect]
     Active Substance: LENOGRASTIM
     Indication: ACUTE LYMPHOCYTIC LEUKAEMIA
     Dosage: 10 MICROG/M2, DAILY, CYCLIC (CYCLE 7), 8 TO HARVEST/ANC GREATER THAN 1.0; CYCLICAL
     Route: 065
  6. LENOGRASTIM [Suspect]
     Active Substance: LENOGRASTIM
     Dosage: 5 MICROG/KG, QD (5 UG/KG DAILY, CYCLIC (CYCLE 3) ; CYCLICAL)
     Route: 058
  7. MERCAPTOPURINE. [Suspect]
     Active Substance: MERCAPTOPURINE
     Indication: ACUTE LYMPHOCYTIC LEUKAEMIA
     Dosage: 60 MG/M2 DAILY, CYCLIC, DAY 1-14 ; CYCLICAL
     Route: 048
  8. FOLINIC ACID [Suspect]
     Active Substance: LEUCOVORIN
     Indication: ACUTE LYMPHOCYTIC LEUKAEMIA
     Route: 042
  9. BLINCYTO [Suspect]
     Active Substance: BLINATUMOMAB
     Indication: ACUTE LYMPHOCYTIC LEUKAEMIA
     Route: 042
     Dates: start: 20161220
  10. METHOTREXATE. [Suspect]
     Active Substance: METHOTREXATE
     Indication: ACUTE LYMPHOCYTIC LEUKAEMIA
     Dosage: CYCLICAL
     Route: 042
  11. DEXAMETHASONE SODIUM PHOSPHATE. [Suspect]
     Active Substance: DEXAMETHASONE SODIUM PHOSPHATE
     Indication: ACUTE LYMPHOCYTIC LEUKAEMIA
     Dosage: (CYCLIC DAY 1-5, 15-19)
     Route: 042
  12. BLINATUMOMAB [Suspect]
     Active Substance: BLINATUMOMAB
     Indication: ACUTE LYMPHOCYTIC LEUKAEMIA
     Dosage: ONLY ONE CYCLE
     Route: 065
  13. INOTUZUMAB OZOGAMICIN [Concomitant]
     Active Substance: INOTUZUMAB OZOGAMICIN
     Indication: PRODUCT USED FOR UNKNOWN INDICATION
  14. CYTARABINE. [Suspect]
     Active Substance: CYTARABINE
     Dosage: (CYCLIC (CYCLE 2))
     Route: 042
  15. PREDNISONE. [Suspect]
     Active Substance: PREDNISONE
     Indication: ACUTE LYMPHOCYTIC LEUKAEMIA
     Dosage: QL 2 H CYCLIC
     Route: 048
  16. CYCLOPHOSPHAMIDE. [Suspect]
     Active Substance: CYCLOPHOSPHAMIDE
     Dosage: (CYCLIC DAY -3 TO-1)
     Route: 042
  17. FILGRASTIM [Suspect]
     Active Substance: FILGRASTIM
     Dosage: 10 MICROG/KG, (CYCLE 7), 8 TO HARVEST/ANC GREATER THAN 1.0 ; CYCLICAL
     Route: 065
  18. DEXAMETHASONE SODIUM PHOSPHATE. [Suspect]
     Active Substance: DEXAMETHASONE SODIUM PHOSPHATE
     Dosage: CYCLIC DAY 1-5 (CYCLE 2)
     Route: 042
  19. LENOGRASTIM [Suspect]
     Active Substance: LENOGRASTIM
     Route: 065
  20. FILGRASTIM [Suspect]
     Active Substance: FILGRASTIM
     Indication: ACUTE LYMPHOCYTIC LEUKAEMIA
     Dosage: 5 MICROG/KG, QD, CYCLIC, 5 TO ANC 1.0 ; CYCLICAL
     Route: 058
  21. CYTARABINE. [Suspect]
     Active Substance: CYTARABINE
     Indication: ACUTE LYMPHOCYTIC LEUKAEMIA
     Dosage: (CYCLIC (QL 2H) CYCLE 7)
     Route: 042
  22. VINCRISTINE SULFATE. [Suspect]
     Active Substance: VINCRISTINE SULFATE
     Indication: ACUTE LYMPHOCYTIC LEUKAEMIA
     Dosage: CYCLICAL (MAX 2 MG), INFUSION TIME:PUSH ; CYCLICAL
     Route: 042
  23. FILGRASTIM [Suspect]
     Active Substance: FILGRASTIM
     Dosage: 5 MICROG/KG, QD (CYCLIC (CYCLE 3)
     Route: 058
  24. THIOTEPA. [Suspect]
     Active Substance: THIOTEPA
     Indication: ACUTE LYMPHOCYTIC LEUKAEMIA
     Dosage: DAY 1-2, CYCLICAL
     Route: 065
     Dates: start: 20150904
  25. IDARUBICIN [Suspect]
     Active Substance: IDARUBICIN
     Indication: ACUTE LYMPHOCYTIC LEUKAEMIA
     Dosage: CYCLIC; DAY1,2 (CYCLE1 AND 2)
     Route: 042
  26. CYTARABINE. [Suspect]
     Active Substance: CYTARABINE
     Dosage: ((CYCLE 2), DAY 2-5, 9-12) CYCLICAL
     Route: 058
  27. BUSULFAN. [Suspect]
     Active Substance: BUSULFAN
     Indication: ACUTE LYMPHOCYTIC LEUKAEMIA
     Route: 042
     Dates: start: 20150904
  28. FILGRASTIM [Suspect]
     Active Substance: FILGRASTIM
     Dosage: 5 MICROG/KG DAILY, CYCLIC, ANC BETWEEN 0.5 TO 1.0 (CYCLE 2) ; CYCLICAL
     Route: 058
  29. FLUDARABINE [Suspect]
     Active Substance: FLUDARABINE PHOSPHATE
     Indication: ACUTE LYMPHOCYTIC LEUKAEMIA
     Dosage: (DAY 3-4-5), CYCLICAL
     Route: 065
     Dates: start: 20150904

REACTIONS (4)
  - Acute lymphocytic leukaemia recurrent [Unknown]
  - Neurotoxicity [Recovered/Resolved]
  - Neoplasm recurrence [Unknown]
  - Seizure [Recovered/Resolved]
